FAERS Safety Report 17309816 (Version 1)
Quarter: 2020Q1

REPORT INFORMATION
  Report Type: Report from Study
  Country: GB (occurrence: GB)
  Receive Date: 20200123
  Receipt Date: 20200123
  Transmission Date: 20200409
  Serious: Yes (Other)
  Sender: FDA-Public Use
  Company Number: NVSC2020GB013221

PATIENT
  Sex: Female

DRUGS (1)
  1. COSENTYX [Suspect]
     Active Substance: SECUKINUMAB
     Indication: ANKYLOSING SPONDYLITIS
     Dosage: 150 MG, QMO
     Route: 058

REACTIONS (10)
  - Lower respiratory tract infection [Unknown]
  - Dyspnoea [Unknown]
  - Hypertonic bladder [Unknown]
  - Alopecia [Unknown]
  - Insomnia [Unknown]
  - Laryngitis [Unknown]
  - Malaise [Unknown]
  - Cough [Unknown]
  - Fatigue [Unknown]
  - Sneezing [Unknown]
